FAERS Safety Report 24628943 (Version 3)
Quarter: 2024Q4

REPORT INFORMATION
  Report Type: Report from Study
  Country: US (occurrence: US)
  Receive Date: 20241118
  Receipt Date: 20241208
  Transmission Date: 20250115
  Serious: Yes (Life-Threatening, Hospitalization, Other)
  Sender: ABBVIE
  Company Number: US-ABBVIE-6003041

PATIENT
  Age: 26 Year
  Sex: Female
  Weight: 57 kg

DRUGS (2)
  1. SKYRIZI [Suspect]
     Active Substance: RISANKIZUMAB-RZAA
     Indication: Crohn^s disease
     Dosage: FORM STRENGTH: 360 MILLIGRAM
     Route: 058
     Dates: end: 202408
  2. SKYRIZI [Suspect]
     Active Substance: RISANKIZUMAB-RZAA
     Indication: Crohn^s disease
     Route: 042
     Dates: start: 202307

REACTIONS (12)
  - Cholecystectomy [Recovered/Resolved]
  - Infection [Unknown]
  - Intestinal perforation [Recovered/Resolved]
  - Palpitations [Recovered/Resolved]
  - Abdominal pain upper [Recovered/Resolved]
  - Pneumonia necrotising [Recovered/Resolved]
  - Immunodeficiency [Recovered/Resolved]
  - Splenectomy [Recovered/Resolved]
  - Laparotomy [Recovered/Resolved]
  - Chest pain [Unknown]
  - Nausea [Unknown]
  - Bladder perforation [Unknown]

NARRATIVE: CASE EVENT DATE: 20240901
